APPROVED DRUG PRODUCT: SIROLIMUS
Active Ingredient: SIROLIMUS
Strength: 1MG/ML
Dosage Form/Route: SOLUTION;ORAL
Application: A215016 | Product #001
Applicant: TORRENT PHARMA INC
Approved: Dec 27, 2021 | RLD: No | RS: No | Type: DISCN